FAERS Safety Report 9704127 (Version 1)
Quarter: 2013Q4

REPORT INFORMATION
  Report Type: Spontaneous
  Country: US (occurrence: US)
  Receive Date: 20131122
  Receipt Date: 20131122
  Transmission Date: 20140711
  Serious: No
  Sender: FDA-Public Use
  Company Number: US-GLAXOSMITHKLINE-A1018266A

PATIENT
  Age: 51 Year
  Sex: Female

DRUGS (8)
  1. WELLBUTRIN SR [Suspect]
     Indication: DEPRESSION
     Dosage: 100MG TWICE PER DAY
     Route: 048
     Dates: start: 1995, end: 20130330
  2. LORAZEPAM [Concomitant]
  3. HYDROCHLOROTHIAZIDE [Concomitant]
  4. PERCOCET [Concomitant]
  5. ESTRADIOL [Concomitant]
  6. UNKNOWN MEDICATION [Concomitant]
  7. COUMADIN [Concomitant]
  8. ASPIRIN [Concomitant]

REACTIONS (4)
  - Withdrawal syndrome [Not Recovered/Not Resolved]
  - Drug ineffective [Unknown]
  - Crying [Unknown]
  - Depression [Unknown]
